FAERS Safety Report 7647646-5 (Version None)
Quarter: 2011Q3

REPORT INFORMATION
  Report Type: 
  Country: None (occurrence: None)
  Receive Date: 20110801
  Receipt Date: 20110801
  Transmission Date: 20111222
  Serious: Yes (Life-Threatening, Disabling, Other)
  Sender: FDA-Public Use
  Company Number: None

PATIENT
  Age: 60 Year
  Weight: 68.038 kg

DRUGS (2)
  1. NOVOLOG [Suspect]
     Dosage: 20 UNITS
     Route: 014
     Dates: start: 20110303, end: 20110303
  2. NOVOLOG [Concomitant]

REACTIONS (2)
  - PAIN [None]
  - ADVERSE REACTION [None]
